FAERS Safety Report 5857202-7 (Version None)
Quarter: 2008Q3

REPORT INFORMATION
  Report Type: 
  Country: None (occurrence: None)
  Receive Date: 20080821
  Receipt Date: 20080805
  Transmission Date: 20090109
  Serious: Yes (Other)
  Sender: FDA-Public Use
  Company Number: 2008BI020396

PATIENT
  Age: 51 Year
  Sex: Female
  Weight: 63 kg

DRUGS (8)
  1. TYSABRI [Suspect]
     Indication: RELAPSING-REMITTING MULTIPLE SCLEROSIS
     Dosage: 300 MG; QM; IV
     Route: 042
     Dates: end: 20080612
  2. ZOLPIDEM TARTRATE [Concomitant]
  3. RIVOTRIL [Concomitant]
  4. ELTHYRONE [Concomitant]
  5. SOTALOL HCL [Concomitant]
  6. PROGYNOVA [Concomitant]
  7. UTROGESTAN [Concomitant]
  8. NOVANTRONE [Concomitant]

REACTIONS (2)
  - ARTERIOSPASM CORONARY [None]
  - MYOCARDIAL INFARCTION [None]
